FAERS Safety Report 10242341 (Version 1)
Quarter: 2014Q2

REPORT INFORMATION
  Report Type: Spontaneous
  Country: US (occurrence: US)
  Receive Date: 20140617
  Receipt Date: 20140617
  Transmission Date: 20141212
  Serious: Yes (Hospitalization)
  Sender: FDA-Public Use
  Company Number: US-GILEAD-2014-0105411

PATIENT
  Sex: Female

DRUGS (9)
  1. LETAIRIS [Suspect]
     Indication: PULMONARY ARTERIAL HYPERTENSION
     Dosage: 10 MG, QD
     Route: 065
     Dates: start: 20131216
  2. AMINO ACIDS NOS W/MINERALS NOS/VITAMINS NOS [Concomitant]
  3. TRAZODONE [Concomitant]
  4. PANTOPRAZOLE [Concomitant]
  5. PRAVASTATIN [Concomitant]
  6. LOSARTAN [Concomitant]
  7. LASIX                              /00032601/ [Concomitant]
  8. GABAPENTIN [Concomitant]
  9. CARVEDILOL [Concomitant]

REACTIONS (1)
  - Fluid retention [Recovered/Resolved]
